FAERS Safety Report 4951535-4 (Version None)
Quarter: 2006Q1

REPORT INFORMATION
  Report Type: 
  Country: None (occurrence: None)
  Receive Date: 20060317
  Receipt Date: 20060306
  Transmission Date: 20060701
  Serious: Yes (Other)
  Sender: FDA-Public Use
  Company Number: 2006033568

PATIENT
  Age: 79 Year
  Sex: Female
  Weight: 67.1324 kg

DRUGS (6)
  1. NARDIL [Suspect]
     Indication: DEPRESSION
     Dosage: 15 MG
  2. LIPITOR [Suspect]
     Indication: BLOOD CHOLESTEROL INCREASED
     Dates: start: 20060101, end: 20060301
  3. LEVOXYL [Concomitant]
  4. ATENOLOL [Concomitant]
  5. CALCIUM WITH VITAMIN D (CALCIUM PHOSPATE, CALCIUM SODIUM LACTATE, ERGO [Concomitant]
  6. VITAMINS [Concomitant]

REACTIONS (5)
  - ARTERIAL STENT INSERTION [None]
  - DRUG INEFFECTIVE [None]
  - INSOMNIA [None]
  - PHARMACEUTICAL PRODUCT COMPLAINT [None]
  - RASH [None]
